FAERS Safety Report 4523890-0 (Version None)
Quarter: 2004Q4

REPORT INFORMATION
  Report Type: 
  Country: None (occurrence: None)
  Receive Date: 20041210
  Receipt Date: 20041206
  Transmission Date: 20050328
  Serious: Yes (Hospitalization)
  Sender: FDA-Public Use
  Company Number: PHRM2004FR03611

PATIENT
  Age: 68 Year
  Sex: Male
  Weight: 80 kg

DRUGS (10)
  1. TAREG [Suspect]
     Indication: HYPERTENSION
     Dosage: 80 MG, QD
     Route: 048
     Dates: start: 20040316, end: 20040512
  2. COTAREG [Suspect]
     Route: 048
  3. TAHOR [Suspect]
     Indication: LIPID METABOLISM DISORDER
     Dosage: 10 MG, QD
     Route: 048
     Dates: start: 20040316, end: 20040717
  4. FAZOL [Suspect]
     Indication: ANORECTAL DISORDER
     Dosage: 1 DF, BID
     Route: 061
     Dates: start: 20040316, end: 20040522
  5. LOCAPRED [Suspect]
     Indication: ANORECTAL DISORDER
     Dosage: 1 DF, BID
     Route: 061
     Dates: start: 20040316, end: 20040512
  6. PANOS [Suspect]
     Indication: SCIATICA
     Dosage: 50 MG, QD
     Route: 048
     Dates: start: 20040421, end: 20040510
  7. DICLOFENAC RPG [Suspect]
     Indication: SCIATICA
     Dosage: 50 MG, BID
     Route: 048
     Dates: start: 20040316, end: 20040521
  8. KETOCONAZOLE [Suspect]
     Route: 061
  9. NIDREL [Suspect]
     Route: 048
  10. OGAST [Suspect]
     Route: 048

REACTIONS (3)
  - CONJUNCTIVITIS [None]
  - MUCOSAL EROSION [None]
  - PEMPHIGUS [None]
